FAERS Safety Report 14309436 (Version 1)
Quarter: 2017Q4

REPORT INFORMATION
  Report Type: Spontaneous
  Country: IT (occurrence: IT)
  Receive Date: 20171220
  Receipt Date: 20171220
  Transmission Date: 20180321
  Serious: Yes (Hospitalization)
  Sender: FDA-Public Use
  Company Number: IT-TEVA-2017-IT-832559

PATIENT
  Age: 25 Year
  Sex: Male

DRUGS (2)
  1. CITALOPRAM ABC 20 MG COMPRESSE RIVESTITE CON FILM [Interacting]
     Active Substance: CITALOPRAM HYDROBROMIDE
     Dates: start: 20161108, end: 20161108
  2. LINEZOLID. [Suspect]
     Active Substance: LINEZOLID
     Dates: start: 20161108, end: 20161108

REACTIONS (4)
  - Tremor [Recovered/Resolved]
  - Anxiety [Recovered/Resolved]
  - Drug interaction [Recovered/Resolved]
  - Headache [Recovered/Resolved]

NARRATIVE: CASE EVENT DATE: 20161108
